FAERS Safety Report 24642177 (Version 1)
Quarter: 2024Q4

REPORT INFORMATION
  Report Type: Spontaneous
  Country: ES (occurrence: ES)
  Receive Date: 20241120
  Receipt Date: 20241120
  Transmission Date: 20250114
  Serious: Yes (Other)
  Sender: AMNEAL
  Company Number: ES-AMNEAL PHARMACEUTICALS-2024-AMRX-04231

PATIENT

DRUGS (1)
  1. ONGENTYS [Suspect]
     Active Substance: OPICAPONE
     Indication: Product used for unknown indication
     Dosage: UNK
     Route: 065
     Dates: start: 20240708, end: 20240727

REACTIONS (4)
  - Myalgia [Recovering/Resolving]
  - Muscle spasms [Recovered/Resolved]
  - Orthostatic hypotension [Recovered/Resolved]
  - Blood creatine phosphokinase increased [Recovering/Resolving]

NARRATIVE: CASE EVENT DATE: 20240708
